FAERS Safety Report 10108436 (Version 2)
Quarter: 2014Q3

REPORT INFORMATION
  Report Type: Other
  Country: US (occurrence: US)
  Receive Date: 20140425
  Receipt Date: 20140929
  Transmission Date: 20150326
  Serious: Yes (Hospitalization, Other)
  Sender: FDA-Public Use
  Company Number: US-GSKPPD-2014GSK005888

PATIENT
  Age: 48 Year
  Sex: Male

DRUGS (6)
  1. MONOPRIL [Concomitant]
     Active Substance: FOSINOPRIL SODIUM
     Dates: start: 20030508
  2. ASPIRIN. [Concomitant]
     Active Substance: ASPIRIN
     Dates: start: 20030508
  3. PLAVIX [Concomitant]
     Active Substance: CLOPIDOGREL BISULFATE
     Dates: start: 20030508
  4. NITROGLYCERIN. [Concomitant]
     Active Substance: NITROGLYCERIN
     Route: 060
     Dates: start: 20030508
  5. AVANDIA [Suspect]
     Active Substance: ROSIGLITAZONE MALEATE
     Indication: DIABETES MELLITUS
     Dosage: DATES OF AVANDIA USE COULD NOT BE CONFIRMED IN RECORDS REVIEWED.
     Route: 048
  6. METOPROLOL [Concomitant]
     Active Substance: METOPROLOL
     Dates: start: 20030508

REACTIONS (6)
  - Coronary artery bypass [Unknown]
  - Acute myocardial infarction [Recovered/Resolved]
  - Coronary arterial stent insertion [Recovered/Resolved]
  - Catheterisation cardiac [Recovered/Resolved]
  - Coronary artery disease [Unknown]
  - Cardiac failure congestive [Unknown]

NARRATIVE: CASE EVENT DATE: 20030504
